FAERS Safety Report 10237242 (Version 1)
Quarter: 2014Q2

REPORT INFORMATION
  Report Type: Spontaneous
  Country: US (occurrence: US)
  Receive Date: 20140613
  Receipt Date: 20140613
  Transmission Date: 20141212
  Serious: No
  Sender: FDA-Public Use
  Company Number: US-GILEAD-2014-0105252

PATIENT
  Sex: Female

DRUGS (3)
  1. SOVALDI [Suspect]
     Indication: HEPATITIS C
     Dosage: UNK
     Route: 065
     Dates: end: 20140608
  2. RIBAVIRIN [Concomitant]
     Dosage: UNK
     Dates: end: 20140608
  3. PEGINTERFERON ALFA [Concomitant]
     Dosage: UNK
     Dates: end: 20140608

REACTIONS (2)
  - Lethargy [Unknown]
  - Weight decreased [Unknown]
